FAERS Safety Report 20949470 (Version 1)
Quarter: 2022Q2

REPORT INFORMATION
  Report Type: Report from Study
  Country: EG (occurrence: EG)
  Receive Date: 20220613
  Receipt Date: 20220613
  Transmission Date: 20220721
  Serious: Yes (Other)
  Sender: FDA-Public Use
  Company Number: EG-NOVARTISPH-NVSC2022EG132518

PATIENT
  Age: 35 Year
  Sex: Male

DRUGS (5)
  1. COSENTYX [Suspect]
     Active Substance: SECUKINUMAB
     Indication: Ankylosing spondylitis
     Dosage: 150 MG, QW (FOR FOUR WEEKS)
     Route: 058
     Dates: start: 20200315, end: 202103
  2. COSENTYX [Suspect]
     Active Substance: SECUKINUMAB
     Dosage: 150 MG, QMO
     Route: 058
     Dates: start: 202108, end: 20220415
  3. DICLOFENAC [Concomitant]
     Active Substance: DICLOFENAC
     Indication: Ankylosing spondylitis
     Dosage: 2 DOSAGE FORM, QD
     Route: 065
     Dates: start: 20220415
  4. DIMRA [Concomitant]
     Indication: Ankylosing spondylitis
     Dosage: 1 DOSAGE FORM (EVERY TWO DAYS) (BEFORE COSENTYX 150MG STOPPED)
     Route: 065
  5. DIMRA [Concomitant]
     Dosage: 2 DOSAGE FORM, QD
     Route: 065

REACTIONS (5)
  - Symptom recurrence [Not Recovered/Not Resolved]
  - Fatigue [Not Recovered/Not Resolved]
  - Spinal pain [Not Recovered/Not Resolved]
  - Therapeutic product effect decreased [Not Recovered/Not Resolved]
  - Inappropriate schedule of product administration [Unknown]

NARRATIVE: CASE EVENT DATE: 20220201
